FAERS Safety Report 8990361 (Version 1)
Quarter: 2012Q4

REPORT INFORMATION
  Report Type: 
  Country: AU (occurrence: AU)
  Receive Date: 20121228
  Receipt Date: 20121228
  Transmission Date: 20130627
  Serious: Yes (Hospitalization, Other)
  Sender: FDA-Public Use
  Company Number: AU-ELI_LILLY_AND_COMPANY-AU201212006273

PATIENT
  Age: 90 Year
  Sex: Male

DRUGS (1)
  1. FORTEO [Suspect]
     Indication: OSTEOPOROSIS
     Dosage: 20 ug, qd
     Dates: start: 20121126

REACTIONS (4)
  - Cardiac failure [Not Recovered/Not Resolved]
  - Urine output decreased [Unknown]
  - Intestinal obstruction [Recovered/Resolved]
  - Abdominal strangulated hernia [Unknown]
